FAERS Safety Report 10239004 (Version 1)
Quarter: 2014Q1

REPORT INFORMATION
  Report Type: Spontaneous
  Country: US (occurrence: None)
  Receive Date: 20140306
  Receipt Date: 20140306
  Transmission Date: 20141002
  Serious: Yes (Hospitalization)
  Sender: FDA-Public Use
  Company Number: 163-21880-13040833

PATIENT
  Age: 80 Year
  Sex: Female
  Weight: 64.5 kg

DRUGS (20)
  1. REVLIMID (LENALIDOMIDE)(CAPSULES) [Suspect]
     Indication: PLASMA CELL MYELOMA
     Dosage: 10 MG, 21 IN 21 D, PO
     Route: 048
     Dates: start: 20130213, end: 20130327
  2. MLN 9708 [Suspect]
     Indication: PLASMA CELL MYELOMA
     Dosage: 40 MG, 3 IN 28 D, PO
     Route: 048
     Dates: start: 20130213, end: 20130327
  3. DEXAMETHASONE (DEXAMETHASONE) (UNKNOWN) [Suspect]
     Indication: PLASMA CELL MYELOMA
     Dosage: 40 MG, 5 IN 28 D, PO
     Route: 048
     Dates: start: 20130213, end: 20130327
  4. ASPIRINE(ACETYLSALICYLIC ACID)(UKNOWN) [Concomitant]
  5. ATENOLOL(ATENOLOL)(UKNOWN) [Concomitant]
  6. BRIMONIDINE TARTRATE(BRIMONIDINE TARTRATE)(1 PERCENT, OPHTHALMIC) [Concomitant]
  7. CALCIUM (CALCIUM)(UKNOWN) [Concomitant]
  8. GABAPENTIN (GABAPENTIN) (UNKNOWN) (GABAPENTIN) [Concomitant]
  9. LEVOTHYROXINE(LEVOTHYROXINE)(UKNOWN) [Concomitant]
  10. LOVAZA(OMEGRA-3 MARINE TRIGLYCERIDES)(UKNOWN) [Concomitant]
  11. MULTIVITAMINS(MULTIVITAMINS)(TABLETS) [Concomitant]
  12. PANTOPRAZOLE(PANTOPRAZOLE)(UNKNOWN) [Concomitant]
  13. PRAVASTATIN(PRAVASTATIN)(UKNOWN) [Concomitant]
  14. SIMVASTATIN(SIMVASTATIN)(UKNOWN) [Concomitant]
  15. PRILOSECT(OMEPRAZOLE)(UKNOWN) [Concomitant]
  16. OMEGA 3(FISH OIL)(KNOWN) [Concomitant]
  17. CO Q 10 (UBIDECARENONE)(UKNOWN) [Concomitant]
  18. ZOMETA(ZOLEDRONIC ACID)(UKNOWN) [Concomitant]
  19. SOLU-MEDROL(METHYLPREDNISOLONE SODIUM SUCCINATE)(UKNOWN) [Concomitant]
  20. VITAMIN D (ERGOCALCIFEROL)(UKNOWN) [Concomitant]

REACTIONS (1)
  - Atrial fibrillation [None]
